FAERS Safety Report 5097016-1 (Version None)
Quarter: 2006Q3

REPORT INFORMATION
  Report Type: 
  Country: None (occurrence: None)
  Receive Date: 20060824
  Receipt Date: 20060809
  Transmission Date: 20061208
  Serious: Yes (Other)
  Sender: FDA-Public Use
  Company Number: CHPA2006US08060

PATIENT
  Age: 59 Year
  Sex: Female
  Weight: 54 kg

DRUGS (1)
  1. DENAVIR [Suspect]
     Indication: HERPES SIMPLEX
     Dosage: 1 APPLICATION, BID, TOPICAL
     Route: 061
     Dates: start: 20060807

REACTIONS (3)
  - FATIGUE [None]
  - HEADACHE [None]
  - PARAESTHESIA [None]
